FAERS Safety Report 17595416 (Version 2)
Quarter: 2020Q2

REPORT INFORMATION
  Report Type: Spontaneous
  Country: US (occurrence: US)
  Receive Date: 20200329
  Receipt Date: 20200417
  Transmission Date: 20200713
  Serious: Yes (Other)
  Sender: FDA-Public Use
  Company Number: US-AMGEN INC.-USASP2020046090

PATIENT
  Age: 31 Year
  Sex: Female
  Weight: 134.1 kg

DRUGS (4)
  1. PROCHLORPERAZINE MALEATE. [Concomitant]
     Active Substance: PROCHLORPERAZINE MALEATE
     Dosage: 5 MILLIGRAM
  2. MEDROL [Suspect]
     Active Substance: METHYLPREDNISOLONE
     Indication: RADICULOPATHY
     Dosage: UNK
     Route: 065
     Dates: start: 20190711, end: 20190717
  3. AIMOVIG [Suspect]
     Active Substance: ERENUMAB-AOOE
     Indication: MIGRAINE
     Dosage: 70 MILLIGRAM
     Route: 058
     Dates: start: 201809, end: 2019
  4. AIMOVIG [Suspect]
     Active Substance: ERENUMAB-AOOE
     Dosage: 140 MILLIGRAM
     Route: 058
     Dates: start: 20190701, end: 20190701

REACTIONS (2)
  - Hypertensive urgency [Recovered/Resolved]
  - Pain in extremity [Not Recovered/Not Resolved]

NARRATIVE: CASE EVENT DATE: 2019
